FAERS Safety Report 4314113-6 (Version None)
Quarter: 2004Q1

REPORT INFORMATION
  Report Type: 
  Country: None (occurrence: None)
  Receive Date: 20040305
  Receipt Date: 20030710
  Transmission Date: 20041129
  Serious: Yes (Hospitalization)
  Sender: FDA-Public Use
  Company Number: 200312126GDS

PATIENT
  Age: 79 Year
  Sex: Male

DRUGS (4)
  1. CIPROFLOXACIN [Suspect]
     Indication: PYELONEPHRITIS
     Dosage: 400 MG, TOTAL DAILY; INTRAVENOUS
     Route: 042
  2. PANTOPRAZOLE [Concomitant]
  3. SIMVASTATIN [Concomitant]
  4. PENTOXIFYLLINE [Concomitant]

REACTIONS (7)
  - ANAPHYLACTOID REACTION [None]
  - CHILLS [None]
  - ERYTHEMA [None]
  - PRURITUS [None]
  - RESPIRATORY DISTRESS [None]
  - TACHYPNOEA [None]
  - WHEEZING [None]
